FAERS Safety Report 5440948-2 (Version None)
Quarter: 2007Q3

REPORT INFORMATION
  Report Type: 
  Country: None (occurrence: None)
  Receive Date: 20070731
  Receipt Date: 20070606
  Transmission Date: 20080115
  Serious: No
  Sender: FDA-Public Use
  Company Number: US200706001513

PATIENT
  Age: 59 Year
  Sex: Female

DRUGS (5)
  1. BYETTA [Suspect]
     Indication: TYPE 2 DIABETES MELLITUS
     Dosage: 5 UG,  SUBCUTANEOUS; 10 UG,  SUBCUTANEOUS
     Route: 058
     Dates: start: 20070401, end: 20070501
  2. BYETTA [Suspect]
     Indication: TYPE 2 DIABETES MELLITUS
     Dosage: 5 UG,  SUBCUTANEOUS; 10 UG,  SUBCUTANEOUS
     Route: 058
     Dates: start: 20070501
  3. EXENATIDE       5MCG PEN, DISPOSABLE DEVICE [Concomitant]
  4. EXENATIDE                  DISPOSABLE DEVICE [Concomitant]
  5. METFORMIN HCL [Concomitant]

REACTIONS (3)
  - DIZZINESS [None]
  - MUSCLE SPASMS [None]
  - NAUSEA [None]
